FAERS Safety Report 6966385-7 (Version None)
Quarter: 2010Q3

REPORT INFORMATION
  Report Type: 
  Country: None (occurrence: None)
  Receive Date: 20100903
  Receipt Date: 20100826
  Transmission Date: 20110219
  Serious: Yes (Hospitalization, Other)
  Sender: FDA-Public Use
  Company Number: AU-AMGEN-QUU424177

PATIENT
  Sex: Female
  Weight: 113.6 kg

DRUGS (14)
  1. NEULASTA [Suspect]
     Indication: CHEMOTHERAPY
     Route: 058
     Dates: start: 20100107, end: 20100217
  2. UNSPECIFIED ANTINEOPLASTIC AGENT [Concomitant]
     Dates: start: 20091113, end: 20100301
  3. ATACAND [Concomitant]
  4. IBRUPROFEN [Concomitant]
  5. EFFEXOR XR [Concomitant]
  6. ENDONE [Concomitant]
  7. VALPROATE SODIUM [Concomitant]
  8. NULYTELY [Concomitant]
  9. ACETAMINOPHEN W/ CODEINE [Concomitant]
  10. PANAMAX [Concomitant]
  11. SEROQUEL [Concomitant]
  12. GAVISCON [Concomitant]
  13. PARIET [Concomitant]
  14. VALIUM [Concomitant]

REACTIONS (4)
  - INJURY [None]
  - LOCALISED INFECTION [None]
  - MUCOSAL INFLAMMATION [None]
  - THERAPEUTIC RESPONSE DECREASED [None]
